FAERS Safety Report 6652295-1 (Version None)
Quarter: 2010Q1

REPORT INFORMATION
  Report Type: 
  Country: None (occurrence: None)
  Receive Date: 20100325
  Receipt Date: 20100322
  Transmission Date: 20100710
  Serious: Yes (Death)
  Sender: FDA-Public Use
  Company Number: US-WATSON-2010-03591

PATIENT
  Age: 73 Year
  Sex: Female

DRUGS (7)
  1. FIORINAL [Suspect]
     Indication: DRUG USE FOR UNKNOWN INDICATION
  2. DOXEPIN (WATSON LABORATORIES) [Suspect]
     Indication: DRUG USE FOR UNKNOWN INDICATION
  3. ALPRAZOLAM [Suspect]
     Indication: DRUG USE FOR UNKNOWN INDICATION
  4. IRBESARTAN [Suspect]
     Indication: DRUG USE FOR UNKNOWN INDICATION
  5. EZETIMIBE [Suspect]
     Indication: DRUG USE FOR UNKNOWN INDICATION
  6. SODIUM SALICYLATE ECT [Suspect]
     Indication: DRUG USE FOR UNKNOWN INDICATION
  7. CLOPIDOGREL [Suspect]
     Indication: DRUG USE FOR UNKNOWN INDICATION

REACTIONS (1)
  - DEATH [None]
